FAERS Safety Report 5206993-7 (Version None)
Quarter: 2007Q1

REPORT INFORMATION
  Report Type: 
  Country: None (occurrence: None)
  Receive Date: 20070110
  Receipt Date: 20061227
  Transmission Date: 20070707
  Serious: Yes (Hospitalization)
  Sender: FDA-Public Use
  Company Number: 2006BI015549

PATIENT
  Age: 50 Year
  Sex: Female
  Weight: 90.7194 kg

DRUGS (16)
  1. AVONEX [Suspect]
     Indication: MULTIPLE SCLEROSIS
     Dosage: 30 UG;QW;IM
     Route: 030
     Dates: start: 19960101, end: 20030801
  2. AVONEX [Suspect]
     Indication: MULTIPLE SCLEROSIS
     Dosage: 30 UG;QW;IM
     Route: 030
     Dates: start: 20030801, end: 20060801
  3. AVONEX [Suspect]
     Indication: MULTIPLE SCLEROSIS
     Dosage: 15 UG;QW;IM
     Route: 030
     Dates: start: 20061201
  4. BACLOFEN [Concomitant]
  5. COPAXONE [Concomitant]
  6. ZOLOFT [Concomitant]
  7. KLONOPIN [Concomitant]
  8. MECLIZINE [Concomitant]
  9. MOTRIN [Concomitant]
  10. ADDERALL 10 [Concomitant]
  11. FIORCET [Concomitant]
  12. PRIMROSE OIL [Concomitant]
  13. VITAMINS [Concomitant]
  14. CRANBERRY PILLS [Concomitant]
  15. SOY SUPPLEMENT [Concomitant]
  16. METHYLPREDNISOLONE 16MG TAB [Concomitant]

REACTIONS (8)
  - CATHETER RELATED COMPLICATION [None]
  - CATHETER RELATED INFECTION [None]
  - INTERNATIONAL NORMALISED RATIO INCREASED [None]
  - LOWER LIMB FRACTURE [None]
  - PROGRESSIVE MULTIPLE SCLEROSIS [None]
  - THROMBOSIS [None]
  - VENOUS THROMBOSIS [None]
  - WEIGHT DECREASED [None]
